FAERS Safety Report 8775996 (Version 1)
Quarter: 2012Q4

REPORT INFORMATION
  Report Type: 
  Country: FR (occurrence: FR)
  Receive Date: 20120910
  Receipt Date: 20120910
  Transmission Date: 20130627
  Serious: Yes (Hospitalization)
  Sender: FDA-Public Use
  Company Number: FR-BRISTOL-MYERS SQUIBB COMPANY-16928558

PATIENT
  Sex: Male

DRUGS (3)
  1. COAPROVEL [Suspect]
     Indication: HYPERTENSION
     Route: 048
     Dates: end: 20120815
  2. APROVEL [Suspect]
     Indication: HYPERTENSION
  3. LANTUS [Concomitant]
     Route: 051

REACTIONS (1)
  - Hyperglycaemia [Not Recovered/Not Resolved]
